FAERS Safety Report 7692417-7 (Version None)
Quarter: 2011Q3

REPORT INFORMATION
  Report Type: 
  Country: None (occurrence: None)
  Receive Date: 20110818
  Receipt Date: 20110811
  Transmission Date: 20111222
  Serious: Yes (Hospitalization, Other)
  Sender: FDA-Public Use
  Company Number: US-ALLERGAN-1103742US

PATIENT
  Age: 80 Year
  Sex: Female
  Weight: 53.968 kg

DRUGS (13)
  1. MAXZIDE [Concomitant]
     Dosage: 75/50 MG, QD
  2. LUNESTA [Concomitant]
     Dosage: 1 TAB AT BEDTIME
  3. CITRACAL [Concomitant]
     Dosage: 1 TAB DAILY
  4. TRAVATAN [Concomitant]
     Dosage: 1 GTT
     Route: 047
  5. NORVASC [Concomitant]
     Dosage: 5 MG, QD
  6. NEURONTIN [Concomitant]
     Dosage: 900 MG, QD
  7. BUSPIRONE [Concomitant]
     Dosage: 45 MG, QD
  8. POTASSIUM CHLORIDE [Concomitant]
     Dosage: 30 MEQ, QD
  9. TOPROL-XL [Concomitant]
     Dosage: 25 MG, QD
  10. PREMARIN [Concomitant]
     Dosage: 652 MG, QD
  11. DOXYCYCLINE HYCLATE [Concomitant]
     Dosage: 20 MG, QHS
  12. RESTASIS [Suspect]
     Indication: DRY EYE
     Dosage: 2 GTT, QID
     Dates: start: 20110213
  13. CENTRUM SILVER [Concomitant]
     Dosage: 1 TAB DAILY

REACTIONS (3)
  - ACUTE RESPIRATORY FAILURE [None]
  - HYPERTENSION [None]
  - ANGIOEDEMA [None]
